FAERS Safety Report 13801262 (Version 1)
Quarter: 2017Q3

REPORT INFORMATION
  Report Type: Spontaneous
  Country: CN (occurrence: CN)
  Receive Date: 20170727
  Receipt Date: 20170727
  Transmission Date: 20171127
  Serious: Yes (Other)
  Sender: FDA-Public Use
  Company Number: CN-PFIZER INC-2017321037

PATIENT
  Age: 77 Year
  Sex: Female

DRUGS (2)
  1. PHARMORUBICIN [Suspect]
     Active Substance: EPIRUBICIN
     Indication: OVARIAN CANCER
     Dosage: 40 MG, 1X/DAY
     Route: 041
     Dates: start: 20170409, end: 20170411
  2. SODIUM CHLORIDE. [Concomitant]
     Active Substance: SODIUM CHLORIDE
     Indication: VEHICLE SOLUTION USE
     Dosage: 250 ML, 1X/DAY
     Route: 041
     Dates: start: 20170409, end: 20170411

REACTIONS (4)
  - Bone marrow failure [Unknown]
  - Enterobacter infection [Unknown]
  - Ascites [Unknown]
  - Pyrexia [Unknown]

NARRATIVE: CASE EVENT DATE: 20170416
